FAERS Safety Report 9322627 (Version 3)
Quarter: 2016Q2

REPORT INFORMATION
  Report Type: Spontaneous
  Country: JP (occurrence: JP)
  Receive Date: 20130531
  Receipt Date: 20160419
  Transmission Date: 20160815
  Serious: Yes (Hospitalization, Other)
  Sender: FDA-Public Use
  Company Number: JP-B.I. PHARMACEUTICALS,INC./RIDGEFIELD-2013-BI-14661NB

PATIENT
  Age: 63 Year
  Sex: Male
  Weight: 59.3 kg

DRUGS (17)
  1. BASEN OD [Concomitant]
     Active Substance: VOGLIBOSE
     Indication: DIABETES MELLITUS
     Dosage: 0.9 MG
     Route: 048
     Dates: start: 20071120, end: 20091027
  2. FP-OD [Concomitant]
     Active Substance: SELEGILINE HYDROCHLORIDE
     Dosage: 5 MG
     Route: 048
     Dates: start: 20120314
  3. BI-SIFROL [Suspect]
     Active Substance: PRAMIPEXOLE
     Dosage: 1 MG
     Route: 048
     Dates: start: 20060808, end: 20060904
  4. FP-OD [Concomitant]
     Active Substance: SELEGILINE HYDROCHLORIDE
     Indication: PARKINSON^S DISEASE
     Dosage: 2.5 MG
     Route: 048
     Dates: start: 20110413, end: 20120313
  5. BI-SIFROL [Suspect]
     Active Substance: PRAMIPEXOLE
     Dosage: 2 MG
     Route: 048
     Dates: start: 20061114, end: 20130226
  6. MADOPAR [Concomitant]
     Active Substance: BENSERAZIDE HYDROCHLORIDE\LEVODOPA
     Indication: PARKINSON^S DISEASE
     Dosage: 100 MG
     Route: 048
     Dates: start: 20060411, end: 20060508
  7. MADOPAR [Concomitant]
     Active Substance: BENSERAZIDE HYDROCHLORIDE\LEVODOPA
     Dosage: 250 MG
     Route: 048
     Dates: start: 20080415, end: 20080623
  8. MADOPAR [Concomitant]
     Active Substance: BENSERAZIDE HYDROCHLORIDE\LEVODOPA
     Dosage: 350 MG
     Route: 048
     Dates: start: 20090127, end: 20100803
  9. BASEN OD [Concomitant]
     Active Substance: VOGLIBOSE
     Dosage: 0.6 MG
     Route: 048
     Dates: start: 20091028
  10. MADOPAR [Concomitant]
     Active Substance: BENSERAZIDE HYDROCHLORIDE\LEVODOPA
     Dosage: 200 MG
     Route: 048
     Dates: start: 20060509, end: 20080414
  11. MYSLEE [Concomitant]
     Active Substance: ZOLPIDEM TARTRATE
     Indication: INSOMNIA
     Dosage: 5 MG
     Route: 048
     Dates: start: 20130227
  12. BI-SIFROL [Suspect]
     Active Substance: PRAMIPEXOLE
     Dosage: 2.5 MG
     Route: 048
  13. MADOPAR [Concomitant]
     Active Substance: BENSERAZIDE HYDROCHLORIDE\LEVODOPA
     Dosage: 300 MG
     Route: 048
     Dates: start: 20080624, end: 20090126
  14. MADOPAR [Concomitant]
     Active Substance: BENSERAZIDE HYDROCHLORIDE\LEVODOPA
     Dosage: 500 MG
     Route: 048
     Dates: start: 20100804
  15. BI-SIFROL [Suspect]
     Active Substance: PRAMIPEXOLE
     Indication: PARKINSON^S DISEASE
     Dosage: 0.5 MG
     Route: 048
     Dates: start: 20060704, end: 20060807
  16. BI-SIFROL [Suspect]
     Active Substance: PRAMIPEXOLE
     Dosage: 1.5 MG
     Route: 048
     Dates: start: 20060905, end: 20061113
  17. BI-SIFROL [Suspect]
     Active Substance: PRAMIPEXOLE
     Dosage: 2.5 MG
     Route: 048
     Dates: start: 20130227, end: 20130523

REACTIONS (1)
  - Interstitial lung disease [Not Recovered/Not Resolved]

NARRATIVE: CASE EVENT DATE: 20130424
